FAERS Safety Report 19071342 (Version 3)
Quarter: 2021Q4

REPORT INFORMATION
  Report Type: Other
  Country: CA (occurrence: CA)
  Receive Date: 20210330
  Receipt Date: 20211018
  Transmission Date: 20220303
  Serious: Yes (Other)
  Sender: FDA-Public Use
  Company Number: CA-GLENMARK PHARMACEUTICALS-2021GMK052954

PATIENT

DRUGS (26)
  1. GABAPENTIN [Suspect]
     Active Substance: GABAPENTIN
     Indication: Pain
     Dosage: UNK
     Route: 065
  2. GABAPENTIN [Suspect]
     Active Substance: GABAPENTIN
     Indication: Back pain
     Dosage: UNK
     Route: 065
  3. HYDROMORPHONE [Suspect]
     Active Substance: HYDROMORPHONE
     Indication: Pain
     Dosage: 6 MILLIGRAM (FORMULATION: SUSTAINED-RELEASE CAPSULE)
     Route: 048
  4. HYDROMORPHONE [Suspect]
     Active Substance: HYDROMORPHONE
     Indication: Back pain
     Dosage: 1 MILLIGRAM
     Route: 048
  5. HYDROMORPHONE [Suspect]
     Active Substance: HYDROMORPHONE
     Dosage: 1 MILLIGRAM, EVERY 4 HOURS
     Route: 048
  6. HYDROMORPHONE [Suspect]
     Active Substance: HYDROMORPHONE
     Dosage: 4 DOSAGE FORM, QD
     Route: 048
  7. PREGABALIN [Suspect]
     Active Substance: PREGABALIN
     Indication: Back pain
     Dosage: UNK
     Route: 065
  8. QUETIAPINE [Suspect]
     Active Substance: QUETIAPINE
     Indication: Pain
     Dosage: 37.5 MILLIGRAM, QD
     Route: 048
  9. QUETIAPINE [Suspect]
     Active Substance: QUETIAPINE
     Indication: Screaming
     Dosage: UNK
     Route: 065
  10. QUETIAPINE [Suspect]
     Active Substance: QUETIAPINE
     Dosage: 12.5 MILLIGRAM, QD
     Route: 048
  11. QUETIAPINE [Suspect]
     Active Substance: QUETIAPINE
     Dosage: 37.5 MILLIGRAM, QD
     Route: 048
  12. QUETIAPINE [Suspect]
     Active Substance: QUETIAPINE
     Dosage: 12.5 MILLIGRAM, QD
     Route: 048
  13. QUETIAPINE [Suspect]
     Active Substance: QUETIAPINE
     Dosage: UNK
     Route: 048
  14. DULOXETINE HYDROCHLORIDE [Suspect]
     Active Substance: DULOXETINE HYDROCHLORIDE
     Indication: Back pain
     Dosage: 30 MILLIGRAM, QD
     Route: 048
  15. DULOXETINE HYDROCHLORIDE [Suspect]
     Active Substance: DULOXETINE HYDROCHLORIDE
     Dosage: 1 DOSAGE FORM, QD
     Route: 048
  16. HYDROMORPHONE [Suspect]
     Active Substance: HYDROMORPHONE
     Indication: Pain
     Dosage: 6 MILLIGRAM (FORMULATION: SUSTAINED RELEASE CAPSULE)
     Route: 048
  17. PREGABALIN [Suspect]
     Active Substance: PREGABALIN
     Indication: Back pain
     Dosage: UNK
     Route: 065
  18. QUETIAPINE [Suspect]
     Active Substance: QUETIAPINE
     Indication: Pain
     Dosage: 12.5 MILLIGRAM, QD
     Route: 048
  19. QUETIAPINE [Suspect]
     Active Substance: QUETIAPINE
     Indication: Screaming
     Dosage: UNK
     Route: 048
  20. QUETIAPINE [Suspect]
     Active Substance: QUETIAPINE
     Dosage: 37.5 MILLIGRAM
     Route: 048
  21. QUETIAPINE [Suspect]
     Active Substance: QUETIAPINE
     Dosage: 12.5 MILLIGRAM, QD
     Route: 048
  22. QUETIAPINE [Suspect]
     Active Substance: QUETIAPINE
     Dosage: UNK
     Route: 048
  23. QUETIAPINE [Suspect]
     Active Substance: QUETIAPINE
     Dosage: UNK
     Route: 048
  24. QUETIAPINE [Suspect]
     Active Substance: QUETIAPINE
     Dosage: UNK
     Route: 048
  25. QUETIAPINE [Suspect]
     Active Substance: QUETIAPINE
     Indication: Pain
     Dosage: UNK
     Route: 065
  26. QUETIAPINE [Suspect]
     Active Substance: QUETIAPINE
     Indication: Screaming
     Dosage: 37.5 MILLIGRAM
     Route: 048

REACTIONS (7)
  - Delirium [Recovered/Resolved]
  - Off label use [Recovered/Resolved]
  - Sedation [Recovered/Resolved]
  - Confusional state [Recovered/Resolved]
  - Pain [Recovered/Resolved]
  - Drug ineffective for unapproved indication [Unknown]
  - Drug ineffective [Recovered/Resolved]
